FAERS Safety Report 6786939-0 (Version None)
Quarter: 2010Q2

REPORT INFORMATION
  Report Type: 
  Country: None (occurrence: None)
  Receive Date: 20100623
  Receipt Date: 20100618
  Transmission Date: 20101027
  Serious: Yes (Other)
  Sender: FDA-Public Use
  Company Number: MX-ELI_LILLY_AND_COMPANY-MX201006005314

PATIENT
  Age: 46 Year
  Sex: Male
  Weight: 62 kg

DRUGS (1)
  1. HUMALOG [Suspect]
     Dosage: 15 IU, DAILY (1/D)
     Route: 058
     Dates: start: 20100604

REACTIONS (1)
  - SYNCOPE [None]
